FAERS Safety Report 9731908 (Version 4)
Quarter: 2014Q2

REPORT INFORMATION
  Report Type: Spontaneous
  Country: JP (occurrence: JP)
  Receive Date: 20131205
  Receipt Date: 20140404
  Transmission Date: 20141212
  Serious: Yes (Life-Threatening, Hospitalization, Other)
  Sender: FDA-Public Use
  Company Number: PHHY2013JP138838

PATIENT
  Age: 76 Year
  Sex: Male
  Weight: 43 kg

DRUGS (13)
  1. NEORAL [Suspect]
     Indication: PSORIASIS
     Dosage: 225 MG, DAILY
     Route: 048
     Dates: start: 20130115, end: 20130125
  2. NEORAL [Suspect]
     Indication: PUSTULAR PSORIASIS
     Dosage: 320 MG, DAILY
     Route: 048
     Dates: start: 20130126, end: 20130128
  3. NEORAL [Suspect]
     Dosage: 150 MG, DAILY
     Route: 048
     Dates: start: 20130129, end: 20130130
  4. NEORAL [Suspect]
     Dosage: 100 MG, PER DAY
     Route: 048
     Dates: start: 20130131, end: 20130204
  5. TIGASONE [Suspect]
     Indication: PUSTULAR PSORIASIS
     Dosage: 40 MG
     Route: 048
     Dates: start: 20130125, end: 20130125
  6. TIGASONE [Suspect]
     Dosage: 70 MG, DAILY
     Route: 048
     Dates: start: 20130126, end: 20130212
  7. TIGASONE [Suspect]
     Dosage: 60 MG, UNK
     Route: 048
     Dates: start: 20130212
  8. TIGASONE [Suspect]
     Dosage: 50 MG, UNK
     Route: 048
     Dates: start: 20130213
  9. TIGASONE [Suspect]
     Dosage: 30 UNK,
     Route: 048
     Dates: start: 20130216, end: 20130216
  10. BAKTAR [Concomitant]
     Indication: INFECTION PROPHYLAXIS
     Route: 048
     Dates: start: 20130125, end: 20130207
  11. FAROM [Concomitant]
     Indication: INFECTION PROPHYLAXIS
     Dosage: 900 MG, UNK
     Route: 048
     Dates: start: 20130126, end: 20130201
  12. ITRIZOLE [Concomitant]
  13. ISCOTIN [Concomitant]
     Indication: INFECTION PROPHYLAXIS
     Dosage: 300 MG, UNK
     Route: 048
     Dates: start: 20130131, end: 20130212

REACTIONS (14)
  - Cytomegalovirus viraemia [Recovered/Resolved]
  - Bronchopneumonia [Recovered/Resolved]
  - Dermatitis exfoliative [Unknown]
  - Disseminated intravascular coagulation [Recovered/Resolved]
  - Depressed level of consciousness [Unknown]
  - B-cell lymphoma [Unknown]
  - Gastrointestinal perforation [Unknown]
  - Cytomegalovirus enterocolitis [Recovered/Resolved]
  - Candida infection [Unknown]
  - Blood urea increased [Unknown]
  - C-reactive protein increased [Unknown]
  - Blood creatinine increased [Unknown]
  - Platelet count decreased [Unknown]
  - Immunosuppressant drug level increased [Unknown]
